FAERS Safety Report 6245823-1 (Version None)
Quarter: 2009Q2

REPORT INFORMATION
  Report Type: 
  Country: None (occurrence: None)
  Receive Date: 20090624
  Receipt Date: 20090611
  Transmission Date: 20091009
  Serious: Yes (Other)
  Sender: FDA-Public Use
  Company Number: 236555K09USA

PATIENT
  Age: 38 Year
  Sex: Female

DRUGS (5)
  1. REBIF [Suspect]
     Indication: MULTIPLE SCLEROSIS
     Dosage: 44 MCG, 3 IN 1 WEEKS, SUBCUTANEOUS
     Route: 058
     Dates: start: 20081119
  2. LEVOTHYROXINE (LEVOTHYROXINE /00068001/) [Suspect]
     Indication: HYPOTHYROIDISM
     Dosage: NOT REPORTED, NOT REPORTED, NOT REPORTED
  3. CITALOPRAM (CITALOPRAM /00582601/) [Suspect]
     Indication: DEPRESSION
  4. AMANTANDINE (AMANTADINE /00055901/) [Suspect]
     Indication: FATIGUE
  5. NAPROXEN [Suspect]
     Indication: PAIN

REACTIONS (1)
  - RETINAL VEIN OCCLUSION [None]
